FAERS Safety Report 7009247-1 (Version None)
Quarter: 2010Q3

REPORT INFORMATION
  Report Type: 
  Country: None (occurrence: None)
  Receive Date: 20100923
  Receipt Date: 20100910
  Transmission Date: 20110219
  Serious: Yes (Death, Hospitalization)
  Sender: FDA-Public Use
  Company Number: US-SANOFI-AVENTIS-2010SA056513

PATIENT
  Sex: Female
  Weight: 58.97 kg

DRUGS (6)
  1. ARAVA [Suspect]
     Indication: RHEUMATOID ARTHRITIS
     Route: 065
  2. ARAVA [Suspect]
     Route: 065
     Dates: start: 20040701, end: 20041101
  3. LIPITOR [Suspect]
  4. LIPITOR [Suspect]
     Dates: start: 20040101, end: 20041101
  5. LEVOXYL [Concomitant]
     Indication: HYPOTHYROIDISM
  6. ACETAMINOPHEN [Concomitant]
     Indication: PAIN
     Route: 065
     Dates: end: 20041203

REACTIONS (15)
  - ABDOMINAL DISTENSION [None]
  - ABDOMINAL PAIN [None]
  - ASCITES [None]
  - CHROMATURIA [None]
  - DECREASED APPETITE [None]
  - ENCEPHALOPATHY [None]
  - FATIGUE [None]
  - HEPATIC FAILURE [None]
  - JAUNDICE [None]
  - LABORATORY TEST ABNORMAL [None]
  - MENTAL IMPAIRMENT [None]
  - NAUSEA [None]
  - PERITONITIS BACTERIAL [None]
  - PNEUMONIA [None]
  - PYREXIA [None]
